FAERS Safety Report 7465465-X (Version None)
Quarter: 2011Q2

REPORT INFORMATION
  Report Type: 
  Country: None (occurrence: None)
  Receive Date: 20110509
  Receipt Date: 20110506
  Transmission Date: 20111010
  Serious: Yes (Other)
  Sender: FDA-Public Use
  Company Number: JP-PFIZER INC-2011097367

PATIENT
  Sex: Male

DRUGS (1)
  1. ARTANE [Suspect]
     Dosage: UNKNOWN

REACTIONS (1)
  - BLOOD PRESSURE DECREASED [None]
